FAERS Safety Report 8229640-9 (Version None)
Quarter: 2012Q1

REPORT INFORMATION
  Report Type: 
  Country: None (occurrence: None)
  Receive Date: 20120322
  Receipt Date: 20120315
  Transmission Date: 20120608
  Serious: Yes (Hospitalization, Other)
  Sender: FDA-Public Use
  Company Number: PHHY2012BR002837

PATIENT
  Age: 41 Year
  Sex: Male

DRUGS (1)
  1. DIOVAN [Suspect]
     Indication: HYPERTENSION
     Dosage: 160 MG, DAILY

REACTIONS (9)
  - SYNCOPE [None]
  - ASTHENIA [None]
  - MALAISE [None]
  - POST PROCEDURAL HAEMORRHAGE [None]
  - GASTROINTESTINAL NEOPLASM [None]
  - PRURITUS GENERALISED [None]
  - YELLOW SKIN [None]
  - BLOOD BILIRUBIN ABNORMAL [None]
  - ABDOMINAL DISTENSION [None]
